FAERS Safety Report 6278133-7 (Version None)
Quarter: 2009Q4

REPORT INFORMATION
  Report Type: 
  Country: None (occurrence: None)
  Receive Date: 20090722
  Receipt Date: 20090714
  Transmission Date: 20100525
  Serious: Yes (Other)
  Sender: FDA-Public Use
  Company Number: US-JNJCH-2009013639

PATIENT
  Sex: Male
  Weight: 31.8 kg

DRUGS (3)
  1. CHILDREN'S ZYRTEC ALLERGY [Suspect]
     Indication: SEASONAL ALLERGY
     Dosage: TEXT:TWO TEASPOONS ONCE A DAY
     Route: 048
     Dates: start: 20090401, end: 20090513
  2. SINGULAIR [Concomitant]
     Indication: ASTHMA
     Dosage: TEXT:4 MG (FREQUENCY UNSPECIFIED)
     Route: 065
  3. ALBUTEROL [Concomitant]
     Indication: ASTHMA
     Dosage: TEXT:UNSPECIFIED AS NEEDED
     Route: 065

REACTIONS (1)
  - FACIAL SPASM [None]
